FAERS Safety Report 11312067 (Version 1)
Quarter: 2015Q3

REPORT INFORMATION
  Report Type: Spontaneous
  Country: US (occurrence: None)
  Receive Date: 20150724
  Receipt Date: 20150724
  Transmission Date: 20151125
  Serious: Yes (Hospitalization)
  Sender: FDA-Public Use
  Company Number: None

PATIENT
  Age: 87 Year
  Sex: Male
  Weight: 76.8 kg

DRUGS (2)
  1. AMIODARONE [Suspect]
     Active Substance: AMIODARONE
     Indication: ATRIAL FIBRILLATION
     Route: 048
     Dates: start: 20150622, end: 20150722
  2. AMIODARONE [Suspect]
     Active Substance: AMIODARONE
     Indication: ARRHYTHMIA SUPRAVENTRICULAR
     Route: 048
     Dates: start: 20150622, end: 20150722

REACTIONS (1)
  - Hypothyroidism [None]

NARRATIVE: CASE EVENT DATE: 20150722
